FAERS Safety Report 24932442 (Version 1)
Quarter: 2025Q1

REPORT INFORMATION
  Report Type: Spontaneous
  Country: AU (occurrence: AU)
  Receive Date: 20250205
  Receipt Date: 20250205
  Transmission Date: 20250408
  Serious: No
  Sender: EXELIXIS
  Company Number: AU-IPSEN Group, Research and Development-2024-16302

PATIENT
  Sex: Female

DRUGS (1)
  1. COMETRIQ [Suspect]
     Active Substance: CABOZANTINIB S-MALATE
     Indication: Medullary thyroid cancer
     Dosage: 140 MG, QD
     Route: 048

REACTIONS (3)
  - Abdominal pain [Unknown]
  - Mouth ulceration [Unknown]
  - Therapy interrupted [Unknown]
